FAERS Safety Report 5031198-2 (Version None)
Quarter: 2006Q2

REPORT INFORMATION
  Report Type: 
  Country: None (occurrence: None)
  Receive Date: 20060621
  Receipt Date: 20060307
  Transmission Date: 20061013
  Serious: No
  Sender: FDA-Public Use
  Company Number: US-GLAXOSMITHKLINE-A0596498A

PATIENT
  Age: 69 Year
  Sex: Female

DRUGS (9)
  1. AVANDARYL [Suspect]
     Route: 048
     Dates: start: 20060301
  2. AVANDIA [Suspect]
     Route: 048
     Dates: start: 20051201, end: 20060301
  3. AMARYL [Suspect]
     Dosage: 2MG TWICE PER DAY
     Route: 048
     Dates: start: 20060101
  4. METFORMIN HCL [Suspect]
     Dosage: 500MG TWICE PER DAY
     Route: 048
     Dates: start: 20051201, end: 20060101
  5. LOPRESSOR [Concomitant]
  6. LANOXIN [Concomitant]
  7. DIOVAN [Concomitant]
  8. ZETIA [Concomitant]
  9. AVANDAMET [Concomitant]
     Route: 048

REACTIONS (3)
  - DRUG INEFFECTIVE [None]
  - PALPITATIONS [None]
  - STOMACH DISCOMFORT [None]
